FAERS Safety Report 9155526 (Version 1)
Quarter: 2013Q1

REPORT INFORMATION
  Report Type: Spontaneous
  Country: US (occurrence: US)
  Receive Date: 20130311
  Receipt Date: 20130311
  Transmission Date: 20140127
  Serious: Yes (Hospitalization)
  Sender: FDA-Public Use
  Company Number: US-BAYER-2013-028415

PATIENT
  Age: 40 Year
  Sex: Female

DRUGS (10)
  1. YAZ [Suspect]
     Route: 048
  2. FERROUS SULFATE [Concomitant]
     Dosage: 1 TABLET DAILY
  3. MULTIVITAMIN [Concomitant]
     Dosage: UNK, DAILY
  4. DARVOCET [Concomitant]
     Indication: PAIN
  5. PROTONIX [Concomitant]
     Route: 042
  6. TYLENOL [Concomitant]
     Indication: PYREXIA
  7. COLACE [Concomitant]
  8. PERCOCET [Concomitant]
  9. PROGESTINE [Concomitant]
  10. AYGESTIN [Concomitant]
     Dosage: 5 MG, EVERY DAY

REACTIONS (2)
  - Pulmonary embolism [Recovered/Resolved]
  - Deep vein thrombosis [None]
